FAERS Safety Report 9021111 (Version 3)
Quarter: 2013Q2

REPORT INFORMATION
  Report Type: Report from Study
  Country: US (occurrence: US)
  Receive Date: 20130119
  Receipt Date: 20130613
  Transmission Date: 20140414
  Serious: Yes (Hospitalization, Other)
  Sender: FDA-Public Use
  Company Number: US-US-EMD SERONO, INC.-7187516

PATIENT
  Age: 44 Year
  Sex: Female

DRUGS (5)
  1. REBIF [Suspect]
     Indication: MULTIPLE SCLEROSIS
     Dates: start: 2004
  2. REBIF [Suspect]
     Dates: end: 201001
  3. REBIF [Suspect]
     Route: 058
     Dates: start: 20121102
  4. METFORMIN [Concomitant]
     Indication: DIABETES MELLITUS
  5. GLIPIZIDE [Concomitant]
     Indication: DIABETES MELLITUS

REACTIONS (9)
  - Sepsis [Recovered/Resolved]
  - Somnolence [Unknown]
  - Decubitus ulcer [Unknown]
  - Urinary tract infection pseudomonal [Not Recovered/Not Resolved]
  - Medical device complication [Recovering/Resolving]
  - Fall [Unknown]
  - Mobility decreased [Unknown]
  - Tremor [Unknown]
  - Injection site erythema [Unknown]
